FAERS Safety Report 5465004-9 (Version None)
Quarter: 2007Q3

REPORT INFORMATION
  Report Type: 
  Country: None (occurrence: None)
  Receive Date: 20070820
  Receipt Date: 20070708
  Transmission Date: 20080115
  Serious: No
  Sender: FDA-Public Use
  Company Number: TPA2007A01477

PATIENT
  Age: 56 Year
  Sex: Male
  Weight: 104.3273 kg

DRUGS (2)
  1. ROZEREM [Suspect]
     Indication: INSOMNIA
     Dosage: 8 MG, QHS, PER ORAL
     Route: 048
     Dates: start: 20070707, end: 20070708
  2. PROPOXYPHENE/ACETAMINOPHEN (PARACETAMOL, DEXTROPROPOXYPHENE HYDROCHLOR [Concomitant]

REACTIONS (2)
  - PRURITUS [None]
  - RASH MACULAR [None]
